FAERS Safety Report 24109010 (Version 3)
Quarter: 2024Q4

REPORT INFORMATION
  Report Type: Report from Study
  Country: US (occurrence: US)
  Receive Date: 20240718
  Receipt Date: 20241022
  Transmission Date: 20250114
  Serious: Yes (Other)
  Sender: TEVA
  Company Number: US-TEVA-VS-3219940

PATIENT
  Age: 59 Year
  Sex: Female

DRUGS (13)
  1. AUSTEDO [Suspect]
     Active Substance: DEUTETRABENAZINE
     Indication: Tardive dyskinesia
     Dosage: TAKE 2 TABLETS BY MOUTH TWICE DAILY WITH FOOD
     Route: 048
     Dates: start: 2024
  2. AUSTEDO [Suspect]
     Active Substance: DEUTETRABENAZINE
     Indication: Tardive dyskinesia
     Dosage: TAKE 2 TABLETS BY MOUTH TWICE DAILY WITH FOOD
     Route: 048
     Dates: start: 202406
  3. AUSTEDO [Suspect]
     Active Substance: DEUTETRABENAZINE
     Indication: Tardive dyskinesia
     Route: 065
  4. OZEMPIC [Concomitant]
     Active Substance: SEMAGLUTIDE
     Indication: Product used for unknown indication
     Dosage: 0.2 SOP 2MG/3ML
  5. ATORVASTATIN [Concomitant]
     Active Substance: ATORVASTATIN
     Indication: Product used for unknown indication
  6. IRBESARTAN [Concomitant]
     Active Substance: IRBESARTAN
     Indication: Product used for unknown indication
  7. LAMICTAL [Concomitant]
     Active Substance: LAMOTRIGINE
     Indication: Product used for unknown indication
  8. PROPRANOLOL [Concomitant]
     Active Substance: PROPRANOLOL HYDROCHLORIDE
     Indication: Product used for unknown indication
  9. OMEPRAZOLE [Concomitant]
     Active Substance: OMEPRAZOLE
     Indication: Product used for unknown indication
     Dosage: CPD
  10. CELEBREX [Concomitant]
     Active Substance: CELECOXIB
     Indication: Product used for unknown indication
  11. FAMOTIDINE [Concomitant]
     Active Substance: FAMOTIDINE
     Indication: Product used for unknown indication
  12. GABAPENTIN [Concomitant]
     Active Substance: GABAPENTIN
     Indication: Product used for unknown indication
  13. LURASIDONE [Concomitant]
     Active Substance: LURASIDONE
     Indication: Product used for unknown indication

REACTIONS (27)
  - Glycosylated haemoglobin increased [Not Recovered/Not Resolved]
  - Hypersomnia [Not Recovered/Not Resolved]
  - Drug ineffective [Unknown]
  - Dizziness [Not Recovered/Not Resolved]
  - Intervertebral disc disorder [Not Recovered/Not Resolved]
  - Blood glucose abnormal [Not Recovered/Not Resolved]
  - Tardive dyskinesia [Not Recovered/Not Resolved]
  - Pruritus [Not Recovered/Not Resolved]
  - Hypoaesthesia [Not Recovered/Not Resolved]
  - Vomiting [Not Recovered/Not Resolved]
  - Pain in extremity [Not Recovered/Not Resolved]
  - Tremor [Not Recovered/Not Resolved]
  - Memory impairment [Not Recovered/Not Resolved]
  - Balance disorder [Not Recovered/Not Resolved]
  - Gait disturbance [Not Recovered/Not Resolved]
  - Loss of personal independence in daily activities [Not Recovered/Not Resolved]
  - Constipation [Not Recovered/Not Resolved]
  - Depression [Not Recovered/Not Resolved]
  - Bruxism [Not Recovered/Not Resolved]
  - Neuropathy peripheral [Not Recovered/Not Resolved]
  - Decreased appetite [Not Recovered/Not Resolved]
  - Dyspepsia [Not Recovered/Not Resolved]
  - Retching [Not Recovered/Not Resolved]
  - Disturbance in attention [Not Recovered/Not Resolved]
  - Tooth fracture [Not Recovered/Not Resolved]
  - Fatigue [Unknown]
  - Asthenia [Unknown]

NARRATIVE: CASE EVENT DATE: 20240101
